FAERS Safety Report 9680049 (Version 1)
Quarter: 2013Q4

REPORT INFORMATION
  Report Type: Spontaneous
  Country: US (occurrence: US)
  Receive Date: 20131110
  Receipt Date: 20131110
  Transmission Date: 20140711
  Serious: No
  Sender: FDA-Public Use
  Company Number: US-009507513-1311USA001752

PATIENT
  Age: 26 Year
  Sex: Female
  Weight: 126.98 kg

DRUGS (1)
  1. NEXPLANON [Suspect]
     Indication: CONTRACEPTION
     Dosage: 1 DF, UNK; 1 ROD
     Route: 059
     Dates: start: 20131029, end: 20131104

REACTIONS (1)
  - Device expulsion [Recovered/Resolved]
